FAERS Safety Report 11916414 (Version 1)
Quarter: 2016Q1

REPORT INFORMATION
  Report Type: Spontaneous
  Country: SE (occurrence: SE)
  Receive Date: 20160114
  Receipt Date: 20160114
  Transmission Date: 20160526
  Serious: Yes (Hospitalization)
  Sender: FDA-Public Use
  Company Number: SE-TEVA-625344ISR

PATIENT
  Age: 50 Year
  Sex: Female

DRUGS (1)
  1. DOXYFERM [Suspect]
     Active Substance: DOXYCYCLINE
     Route: 048

REACTIONS (9)
  - Hypersensitivity [Unknown]
  - Blood pressure decreased [Unknown]
  - Cold sweat [Unknown]
  - Hypoaesthesia [Unknown]
  - Nausea [Unknown]
  - Malaise [Unknown]
  - Tachycardia [Unknown]
  - Feeling hot [Unknown]
  - Sensation of foreign body [Unknown]
